FAERS Safety Report 9954652 (Version 2)
Quarter: 2014Q1

REPORT INFORMATION
  Report Type: Report from Study
  Country: US (occurrence: US)
  Receive Date: 20140304
  Receipt Date: 20140304
  Transmission Date: 20141002
  Serious: No
  Sender: FDA-Public Use
  Company Number: US-ABBVIE-13P-163-1057189-00

PATIENT
  Age: 31 Year
  Sex: Female

DRUGS (9)
  1. HUMIRA [Suspect]
     Indication: CROHN^S DISEASE
     Dates: start: 20130228
  2. HUMIRA [Suspect]
     Dates: start: 20130321
  3. HUMIRA [Suspect]
  4. LEVAQUIN [Concomitant]
     Indication: INFECTION PROPHYLAXIS
     Dosage: 750 MG DAILY
  5. PROZAC [Concomitant]
     Indication: DEPRESSION
     Dosage: 10 MG DAILY
  6. LEXAPRO [Concomitant]
     Indication: DEPRESSION
     Dosage: 10 MG DAILY
  7. ATIVAN [Concomitant]
     Indication: ANXIETY
     Dosage: 1 MG  AS REQUIRED
  8. TRAMADOL [Concomitant]
     Indication: PAIN
     Dosage: 15 MG EVERY 6 HOURS OR AS REQUIRED
  9. VICODIN [Concomitant]
     Indication: PAIN
     Dosage: 5/500 4 TIMES A DAY OR AS REQUIRED

REACTIONS (1)
  - Injection site pain [Recovered/Resolved]
